FAERS Safety Report 9168553 (Version 1)
Quarter: 2013Q1

REPORT INFORMATION
  Report Type: Spontaneous
  Country: US (occurrence: None)
  Receive Date: 20130314
  Receipt Date: 20130314
  Transmission Date: 20140127
  Serious: Yes (Other)
  Sender: FDA-Public Use
  Company Number: None

PATIENT
  Age: 61 Year
  Sex: Male
  Weight: 81.65 kg

DRUGS (10)
  1. COMBIVIR [Suspect]
     Indication: HIV INFECTION
     Dosage: 1 TABLET BID PO
     Route: 048
     Dates: start: 20120328, end: 20120830
  2. ISENTRESS [Concomitant]
  3. NORVIR [Concomitant]
  4. PREZISTA [Concomitant]
  5. MARINOL [Concomitant]
  6. VIT. B 12 [Concomitant]
  7. CELEXA [Concomitant]
  8. BACTRIM SS [Concomitant]
  9. ZANTAC [Concomitant]
  10. VIT. C [Concomitant]

REACTIONS (1)
  - Haemoglobin decreased [None]
